FAERS Safety Report 11135558 (Version 1)
Quarter: 2015Q2

REPORT INFORMATION
  Report Type: Spontaneous
  Country: US (occurrence: None)
  Receive Date: 20150522
  Receipt Date: 20150522
  Transmission Date: 20150821
  Serious: No
  Sender: FDA-Public Use
  Company Number: None

PATIENT
  Age: 16 Year
  Sex: Male
  Weight: 31 kg

DRUGS (11)
  1. PREDNISONE. [Suspect]
     Active Substance: PREDNISONE
     Dosage: 0 MG, LAST ADMINISTERED DURING MAINTENANCE !!
     Dates: end: 20130602
  2. CYCLOPHOSPHAMIDE. [Suspect]
     Active Substance: CYCLOPHOSPHAMIDE
     Dosage: 0 MG, LAST ADMINISTERED DURING DELAYED INTENSIFICATION D29
     Dates: end: 20100913
  3. CYTARABINE. [Suspect]
     Active Substance: CYTARABINE
     Dosage: 0 MG, LAST ADMINISTERED DURING DELAYED INTENSIFICATION?
     Dates: end: 20100923
  4. METHOTREXATE [Suspect]
     Active Substance: METHOTREXATE
     Dosage: 0 MG, LAST ADMINISTERED DURING MAINTENANCE 12 DAY 1?
     Dates: end: 20130603
  5. THIOGUANINE [Suspect]
     Active Substance: THIOGUANINE
     Dosage: 0 MG, LAST ADMINISTERED DURING DELAYED INTENSIFICATION D42
     Dates: end: 20100926
  6. DEXAMETHASONE. [Suspect]
     Active Substance: DEXAMETHASONE
     Dosage: 0 MG, LAST ADMINISTERED DURING DELAYED INTENSIFICATION D21
     Dates: end: 20100905
  7. MERCAPTOPURINE. [Suspect]
     Active Substance: MERCAPTOPURINE
     Dosage: 0 MG, LAST ADMINISTERED DURING MAINTENANCE 11
     Dates: end: 20130602
  8. DAUNORUBICIN [Concomitant]
     Active Substance: DAUNORUBICIN
     Dosage: 0 MG, LAST ADMINISTERED DURING INDUCTION D22
     Dates: end: 20100305
  9. DOXORUBICIN HYDROCHLORIDE. [Suspect]
     Active Substance: DOXORUBICIN HYDROCHLORIDE
     Dosage: 0 MG, LAST ADMINISTERED DURING DELAYED INTENSIFICATION D15
     Dates: end: 20100830
  10. PEG-L-ASPARAGINASE (K-H) [Suspect]
     Active Substance: PEGASPARGASE
     Dosage: 0 IU, LAST ADMINISTERED DURING DELAYED INTENSIFICATION D43
     Dates: end: 20100927
  11. VINCRISTINE SULFATE. [Concomitant]
     Active Substance: VINCRISTINE SULFATE
     Dosage: 0 MG, LAST ADMINISTERED DURING MAINTENANCE 12 DAY 1
     Dates: end: 20130603

REACTIONS (4)
  - Thrombocytopenia [None]
  - Neutropenia [None]
  - Fatigue [None]
  - Myelodysplastic syndrome [None]

NARRATIVE: CASE EVENT DATE: 20150504
